FAERS Safety Report 6593264-X (Version None)
Quarter: 2010Q1

REPORT INFORMATION
  Report Type: 
  Country: None (occurrence: None)
  Receive Date: 20100222
  Receipt Date: 20100217
  Transmission Date: 20100710
  Serious: Yes (Other)
  Sender: FDA-Public Use
  Company Number: PHEH2009US00888

PATIENT
  Sex: Male

DRUGS (1)
  1. ELIDEL [Suspect]
     Indication: RASH

REACTIONS (8)
  - ACUTE LYMPHOCYTIC LEUKAEMIA [None]
  - CATHETER PLACEMENT [None]
  - CHEST PAIN [None]
  - CONVULSION [None]
  - DYSPNOEA [None]
  - LIMB INJURY [None]
  - LUNG INFILTRATION [None]
  - PYREXIA [None]
